FAERS Safety Report 9113675 (Version 1)
Quarter: 2013Q1

REPORT INFORMATION
  Report Type: Report from Study
  Country: GB (occurrence: GB)
  Receive Date: 20130208
  Receipt Date: 20130208
  Transmission Date: 20140127
  Serious: Yes (Hospitalization)
  Sender: FDA-Public Use
  Company Number: GB-ROCHE-1185118

PATIENT
  Sex: Female

DRUGS (3)
  1. TOCILIZUMAB [Suspect]
     Indication: RHEUMATOID ARTHRITIS
     Route: 065
     Dates: start: 20111109
  2. GABAPENTIN [Concomitant]
  3. TRAMADOL [Concomitant]

REACTIONS (5)
  - Nerve compression [Unknown]
  - Intervertebral disc protrusion [Unknown]
  - Gastrointestinal inflammation [Unknown]
  - Colitis [Unknown]
  - Renal failure acute [Unknown]
